FAERS Safety Report 9830394 (Version 1)
Quarter: 2014Q1

REPORT INFORMATION
  Report Type: Spontaneous
  Country: US (occurrence: US)
  Receive Date: 20140120
  Receipt Date: 20140120
  Transmission Date: 20141002
  Serious: No
  Sender: FDA-Public Use
  Company Number: US-BAXTER-2013BAX008619

PATIENT
  Sex: Female

DRUGS (1)
  1. NITROGLYCERIN IN 5% DEXTROSE INJECTION [Suspect]
     Indication: PRODUCT USED FOR UNKNOWN INDICATION

REACTIONS (2)
  - Incorrect drug administration rate [Recovered/Resolved]
  - Blood pressure decreased [Recovered/Resolved]
